FAERS Safety Report 25026893 (Version 1)
Quarter: 2025Q1

REPORT INFORMATION
  Report Type: Spontaneous
  Country: US (occurrence: US)
  Receive Date: 20250301
  Receipt Date: 20250301
  Transmission Date: 20250409
  Serious: No
  Sender: SANOFI AVENTIS
  Company Number: US-SA-2025SA054349

PATIENT
  Sex: Female

DRUGS (13)
  1. DUPIXENT [Suspect]
     Active Substance: DUPILUMAB
     Indication: Dermatitis atopic
     Dosage: 300 MG, QOW
     Route: 058
  2. ISOTRETINOIN [Suspect]
     Active Substance: ISOTRETINOIN
  3. AZITHROMYCIN [Concomitant]
     Active Substance: AZITHROMYCIN
  4. BETAMETHASONE VALERATE [Concomitant]
     Active Substance: BETAMETHASONE VALERATE
  5. ACETAMINOPHEN\BUTALBITAL\CAFFEINE [Concomitant]
     Active Substance: ACETAMINOPHEN\BUTALBITAL\CAFFEINE
  6. CLINDAMYCIN [Concomitant]
     Active Substance: CLINDAMYCIN
  7. DOXYCYCLINE [Concomitant]
     Active Substance: DOXYCYCLINE
  8. FLUCONAZOLE [Concomitant]
     Active Substance: FLUCONAZOLE
  9. METHYLPHENIDATE [Concomitant]
     Active Substance: METHYLPHENIDATE
  10. METRONIDAZOLE [Concomitant]
     Active Substance: METRONIDAZOLE
  11. ONDANSETRON [Concomitant]
     Active Substance: ONDANSETRON
  12. PROMETHAZINE [Concomitant]
     Active Substance: PROMETHAZINE HYDROCHLORIDE
  13. PREDNISONE [Concomitant]
     Active Substance: PREDNISONE

REACTIONS (1)
  - Dry skin [Not Recovered/Not Resolved]
